FAERS Safety Report 11791620 (Version 1)
Quarter: 2015Q4

REPORT INFORMATION
  Report Type: Spontaneous
  Country: US (occurrence: US)
  Receive Date: 20151201
  Receipt Date: 20151201
  Transmission Date: 20160305
  Serious: No
  Sender: FDA-Public Use
  Company Number: US-GLAXOSMITHKLINE-US2015GSK167194

PATIENT
  Sex: Male

DRUGS (2)
  1. IMITREX SPRAY [Suspect]
     Active Substance: SUMATRIPTAN
     Indication: MIGRAINE
     Dosage: 5 MG UNK, U
     Route: 065
     Dates: start: 201508
  2. IMITREX SPRAY [Suspect]
     Active Substance: SUMATRIPTAN
     Dosage: 20 MG UNK, U
     Route: 065
     Dates: start: 2015

REACTIONS (1)
  - Drug ineffective [Unknown]
